FAERS Safety Report 11824909 (Version 1)
Quarter: 2015Q4

REPORT INFORMATION
  Report Type: Spontaneous
  Country: US (occurrence: US)
  Receive Date: 20151210
  Receipt Date: 20151210
  Transmission Date: 20160305
  Serious: No
  Sender: FDA-Public Use
  Company Number: US-SHIRE-US-001321

PATIENT
  Age: 31 Year
  Sex: Male

DRUGS (7)
  1. CLONIDINE PATCH [Concomitant]
     Indication: BLOOD PRESSURE MEASUREMENT
     Dosage: STREN/VOLUM: 0.1 MG|FREQU: ONCE PER WEEK
     Route: 062
  2. TPN [Concomitant]
     Active Substance: AMINO ACIDS\DEXTROSE\ELECTROLYTES NOS\SOYBEAN OIL
     Dosage: DF
     Dates: end: 201409
  3. GATTEX [Suspect]
     Active Substance: TEDUGLUTIDE\WATER
     Indication: SHORT-BOWEL SYNDROME
     Dosage: UNK, 1X/DAY:QD
     Route: 058
     Dates: start: 20140519
  4. LOMOTIL [Concomitant]
     Active Substance: ATROPINE SULFATE\DIPHENOXYLATE HYDROCHLORIDE
     Indication: DIARRHOEA
     Dosage: DF FREQU: AS NEEDED
  5. METAPROLOL [Concomitant]
     Indication: BLOOD PRESSURE MEASUREMENT
     Dosage: STREN/VOLUM: 100 MG|FREQU: AS NEEDED
  6. TPN [Concomitant]
     Active Substance: AMINO ACIDS\DEXTROSE\ELECTROLYTES NOS\SOYBEAN OIL
     Indication: MEDICAL DIET
     Dosage: [DF] 24 HOUR INFUSION
     Dates: start: 201409, end: 201509
  7. TPN [Concomitant]
     Active Substance: AMINO ACIDS\DEXTROSE\ELECTROLYTES NOS\SOYBEAN OIL
     Dosage: [DF] 12 HOUR INFUSION
     Dates: start: 201509

REACTIONS (1)
  - Weight increased [Recovering/Resolving]

NARRATIVE: CASE EVENT DATE: 201409
